FAERS Safety Report 5645347-6 (Version None)
Quarter: 2008Q1

REPORT INFORMATION
  Report Type: 
  Country: None (occurrence: None)
  Receive Date: 20080229
  Receipt Date: 20080218
  Transmission Date: 20080703
  Serious: Yes (Hospitalization)
  Sender: FDA-Public Use
  Company Number: B0509797A

PATIENT
  Age: 48 Year
  Sex: Female

DRUGS (4)
  1. ZOPHREN IV [Suspect]
     Indication: PROPHYLAXIS OF NAUSEA AND VOMITING
     Dosage: 8MG SINGLE DOSE
     Route: 042
     Dates: start: 20080129, end: 20080129
  2. EMEND [Suspect]
     Indication: PROPHYLAXIS OF NAUSEA AND VOMITING
     Route: 048
  3. CISPLATIN [Concomitant]
     Route: 065
     Dates: start: 20080129
  4. NAVELBINE [Concomitant]
     Route: 065
     Dates: start: 20080129

REACTIONS (1)
  - HEPATOCELLULAR INJURY [None]
